FAERS Safety Report 6192778-4 (Version None)
Quarter: 2009Q2

REPORT INFORMATION
  Report Type: 
  Country: None (occurrence: None)
  Receive Date: 20090518
  Receipt Date: 20081205
  Transmission Date: 20091009
  Serious: No
  Sender: FDA-Public Use
  Company Number: US-TYCO HEALTHCARE/MALLINCKRODT-T200802130

PATIENT

DRUGS (3)
  1. ACETAMINOPHEN AND HYDROCODONE BITARTRATE [Suspect]
     Indication: PAIN
     Dosage: UNK
  2. ACETAMINOPHEN AND HYDROCODONE BITARTRATE [Suspect]
     Dosage: 7.5 MG, UNK
  3. OXYCODONE HCL AND ACETAMINOPHEN [Suspect]
     Indication: PAIN
     Dosage: UNK

REACTIONS (7)
  - ABDOMINAL DISCOMFORT [None]
  - DRUG DIVERSION [None]
  - DRUG EFFECT DECREASED [None]
  - FOREIGN BODY TRAUMA [None]
  - HEADACHE [None]
  - NAUSEA [None]
  - SOMNOLENCE [None]
